FAERS Safety Report 14947444 (Version 1)
Quarter: 2018Q2

REPORT INFORMATION
  Report Type: Spontaneous
  Country: JP (occurrence: JP)
  Receive Date: 20180529
  Receipt Date: 20180529
  Transmission Date: 20180711
  Serious: Yes (Hospitalization)
  Sender: FDA-Public Use
  Company Number: JP-ORPHAN EUROPE-2048589

PATIENT
  Age: 12 Month
  Sex: Male

DRUGS (7)
  1. CYSTADANE [Suspect]
     Active Substance: BETAINE
     Route: 048
     Dates: start: 20171212
  2. LEUCOVORIN. [Concomitant]
     Active Substance: LEUCOVORIN
     Route: 048
  3. HYCOBAL [Concomitant]
     Route: 048
  4. FRESMIN [Concomitant]
     Active Substance: HYDROXOCOBALAMIN
  5. CYSTADANE [Suspect]
     Active Substance: BETAINE
     Indication: HOMOCYSTINURIA
     Route: 048
     Dates: start: 20161213
  6. CYSTADANE [Suspect]
     Active Substance: BETAINE
     Route: 048
     Dates: start: 20170816
  7. ALFAROL [Concomitant]
     Active Substance: ALFACALCIDOL

REACTIONS (2)
  - Nasopharyngitis [Recovered/Resolved]
  - Pyrexia [Recovered/Resolved]

NARRATIVE: CASE EVENT DATE: 20171201
